FAERS Safety Report 24608107 (Version 1)
Quarter: 2024Q4

REPORT INFORMATION
  Report Type: Report from Study
  Country: CA (occurrence: CA)
  Receive Date: 20241112
  Receipt Date: 20241112
  Transmission Date: 20250114
  Serious: Yes (Other)
  Sender: ALEXION PHARMACEUTICALS
  Company Number: CA-AstraZeneca-CH-00740861A

PATIENT

DRUGS (4)
  1. OLAPARIB [Suspect]
     Active Substance: OLAPARIB
     Indication: Breast cancer
     Dosage: 200 MILLIGRAM, BID
  2. OLAPARIB [Suspect]
     Active Substance: OLAPARIB
     Dosage: 200 MILLIGRAM, BID
  3. OLAPARIB [Suspect]
     Active Substance: OLAPARIB
     Dosage: 200 MILLIGRAM, BID
  4. OLAPARIB [Suspect]
     Active Substance: OLAPARIB
     Dosage: 200 MILLIGRAM, BID

REACTIONS (3)
  - Haematotoxicity [Unknown]
  - Fatigue [Unknown]
  - Nausea [Unknown]
